FAERS Safety Report 8320390-7 (Version None)
Quarter: 2012Q2

REPORT INFORMATION
  Report Type: 
  Country: None (occurrence: None)
  Receive Date: 20120426
  Receipt Date: 20120426
  Transmission Date: 20120825
  Serious: Yes (Hospitalization)
  Sender: FDA-Public Use
  Company Number: None

PATIENT
  Sex: Male
  Weight: 75.7507 kg

DRUGS (13)
  1. DIGOXIN [Concomitant]
  2. ALTACE [Concomitant]
  3. ANDROGEL [Concomitant]
  4. FUROSEMIDE [Concomitant]
  5. LIPITOR [Concomitant]
  6. RANEXA [Concomitant]
  7. NIASPAN [Concomitant]
  8. PRADAXA [Suspect]
     Indication: ATRIAL FIBRILLATION
  9. POTASSIUM CHLORIDE [Concomitant]
  10. PLAVIX [Concomitant]
  11. IMODIUM [Concomitant]
  12. SPIRIVA [Concomitant]
  13. SEREVENT [Concomitant]

REACTIONS (1)
  - TRANSIENT ISCHAEMIC ATTACK [None]
